FAERS Safety Report 15463307 (Version 2)
Quarter: 2018Q4

REPORT INFORMATION
  Report Type: Report from Study
  Country: None (occurrence: CA)
  Receive Date: 20181004
  Receipt Date: 20181024
  Transmission Date: 20190204
  Serious: Yes (Other)
  Sender: FDA-Public Use
  Company Number: CA-ABBVIE-18K-028-2503286-00

PATIENT
  Sex: Female

DRUGS (2)
  1. HUMIRA [Suspect]
     Active Substance: ADALIMUMAB
     Indication: CROHN^S DISEASE
     Route: 058
     Dates: start: 20100525, end: 20180619
  2. HUMIRA [Suspect]
     Active Substance: ADALIMUMAB
     Route: 058
     Dates: start: 20180821

REACTIONS (2)
  - Benign neoplasm [Recovered/Resolved]
  - Rosacea [Not Recovered/Not Resolved]

NARRATIVE: CASE EVENT DATE: 2018
